FAERS Safety Report 6059237-0 (Version None)
Quarter: 2009Q1

REPORT INFORMATION
  Report Type: 
  Country: None (occurrence: None)
  Receive Date: 20090130
  Receipt Date: 20090126
  Transmission Date: 20090719
  Serious: Yes (Other)
  Sender: FDA-Public Use
  Company Number: NO-MERCK-0901NOR00008

PATIENT
  Age: 82 Year
  Sex: Female

DRUGS (3)
  1. PRINIVIL [Suspect]
     Route: 065
  2. DONEPEZIL HCL [Suspect]
     Route: 065
  3. OXAZEPAM [Suspect]
     Route: 065

REACTIONS (5)
  - BALANCE DISORDER [None]
  - DIARRHOEA [None]
  - FALL [None]
  - ORTHOSTATIC HYPOTENSION [None]
  - VOMITING [None]
